FAERS Safety Report 25163039 (Version 2)
Quarter: 2025Q2

REPORT INFORMATION
  Report Type: Spontaneous
  Country: JP (occurrence: JP)
  Receive Date: 20250404
  Receipt Date: 20250417
  Transmission Date: 20250717
  Serious: Yes (Hospitalization, Other)
  Sender: BRISTOL-MYERS SQUIBB COMPANY
  Company Number: JP-TAIHO-2024-009544

PATIENT
  Age: 69 Year
  Sex: Male
  Weight: 75.3 kg

DRUGS (7)
  1. ABRAXANE [Suspect]
     Active Substance: PACLITAXEL
     Indication: Lung adenocarcinoma
     Dosage: ON DAYS 1, 8, AND 15 OF EACH 28-DAY CYCLE; CYCLE 1 DAILY DOSE: 191.5 MILLIGRAM(S)
     Route: 041
     Dates: start: 20240822, end: 20240906
  2. AVASTIN [Suspect]
     Active Substance: BEVACIZUMAB
     Indication: Lung adenocarcinoma
     Route: 042
     Dates: start: 20240822, end: 20240822
  3. EDOXABAN TOSYLATE [Suspect]
     Active Substance: EDOXABAN TOSYLATE
     Indication: Lung adenocarcinoma
     Dosage: OD
     Route: 048
     Dates: start: 20240822, end: 20240926
  4. GRANISETRON HYDROCHLORIDE [Concomitant]
     Active Substance: GRANISETRON HYDROCHLORIDE
     Indication: Prophylaxis
     Dosage: ON A 3-WEEK-ON, 1-WEEK-OFF SCHEDULE?DAILY DOSE: 1 MILLIGRAM(S)
     Route: 041
     Dates: start: 20240822, end: 20240906
  5. AMLODIPINE [Concomitant]
     Active Substance: AMLODIPINE BESYLATE
     Indication: Hypertension
     Route: 048
  6. FAMOTIDINE [Concomitant]
     Active Substance: FAMOTIDINE
     Indication: Duodenal ulcer
     Route: 048
  7. CALCIUM CARBONATE\CHOLECALCIFEROL\MAGNESIUM CARBONATE [Concomitant]
     Active Substance: CALCIUM CARBONATE\CHOLECALCIFEROL\MAGNESIUM CARBONATE
     Indication: Bone cancer metastatic
     Route: 048
     Dates: start: 20240707

REACTIONS (2)
  - Pulmonary alveolar haemorrhage [Recovered/Resolved]
  - Interstitial lung disease [Recovering/Resolving]

NARRATIVE: CASE EVENT DATE: 20240920
